FAERS Safety Report 16220185 (Version 2)
Quarter: 2019Q3

REPORT INFORMATION
  Report Type: Report from Study
  Country: US (occurrence: US)
  Receive Date: 20190420
  Receipt Date: 20190920
  Transmission Date: 20191004
  Serious: No
  Sender: FDA-Public Use
  Company Number: PHEH2019US016600

PATIENT
  Sex: Female

DRUGS (2)
  1. COSENTYX [Suspect]
     Active Substance: SECUKINUMAB
     Dosage: 150 MG, QMO
     Route: 058
  2. COSENTYX [Suspect]
     Active Substance: SECUKINUMAB
     Indication: PSORIASIS
     Dosage: 150 MG, QW
     Route: 058
     Dates: start: 20190409

REACTIONS (6)
  - Nasopharyngitis [Unknown]
  - Nasal congestion [Unknown]
  - Anosmia [Unknown]
  - Ageusia [Unknown]
  - Urinary tract infection [Unknown]
  - Influenza like illness [Unknown]
